FAERS Safety Report 5092004-3 (Version None)
Quarter: 2006Q3

REPORT INFORMATION
  Report Type: 
  Country: None (occurrence: None)
  Receive Date: 20060825
  Receipt Date: 20060810
  Transmission Date: 20061208
  Serious: Yes (Hospitalization)
  Sender: FDA-Public Use
  Company Number: JP200608003691

PATIENT
  Age: 77 Year
  Sex: Female
  Weight: 40 kg

DRUGS (4)
  1. RALOXIFENE HCL [Suspect]
     Indication: OSTEOPOROSIS POSTMENOPAUSAL
     Dosage: 60 MG, DAILY (1/D), ORAL
     Route: 048
     Dates: start: 20050408, end: 20060516
  2. LOXOPROFEN SODIUM [Concomitant]
  3. SELBEX (TEPRENONE) [Concomitant]
  4. ELCITONIN (ELCATONIN) [Concomitant]

REACTIONS (1)
  - OSTEONECROSIS [None]
